FAERS Safety Report 9704076 (Version 4)
Quarter: 2014Q3

REPORT INFORMATION
  Report Type: Spontaneous
  Country: US (occurrence: US)
  Receive Date: 20131122
  Receipt Date: 20140725
  Transmission Date: 20150326
  Serious: Yes (Hospitalization, Other)
  Sender: FDA-Public Use
  Company Number: US-PFIZER INC-2013334236

PATIENT
  Age: 36 Year
  Sex: Female
  Weight: 68.03 kg

DRUGS (10)
  1. LYRICA [Suspect]
     Active Substance: PREGABALIN
     Indication: SCIATICA
     Dosage: 150 MG, 2X/DAY
  2. LYRICA [Suspect]
     Active Substance: PREGABALIN
     Dosage: 300 MG, 2X/DAY
     Dates: start: 2010
  3. LYRICA [Suspect]
     Active Substance: PREGABALIN
     Dosage: 50 MG, 1X/DAY
  4. LYRICA [Suspect]
     Active Substance: PREGABALIN
     Dosage: 100 MG, 1X/DAY
  5. LYRICA [Suspect]
     Active Substance: PREGABALIN
     Dosage: 75 MG, 1X/DAY
  6. HYDROCODONE [Concomitant]
     Active Substance: HYDROCODONE
     Indication: PAIN MANAGEMENT
     Dosage: UNK
  7. LYRICA [Suspect]
     Active Substance: PREGABALIN
     Dosage: 300 MG, 2X/DAY
  8. LYRICA [Suspect]
     Active Substance: PREGABALIN
     Indication: POST HERPETIC NEURALGIA
     Dosage: 50 MG, 2X/DAY
  9. LYRICA [Suspect]
     Active Substance: PREGABALIN
     Dosage: 150 MG, 1X/DAY
  10. LOSARTAN [Concomitant]
     Active Substance: LOSARTAN
     Dosage: UNK

REACTIONS (18)
  - Cardiac valve disease [Unknown]
  - Feeling abnormal [Unknown]
  - Paraesthesia [Unknown]
  - Nerve injury [Unknown]
  - Skin disorder [Unknown]
  - Endocarditis [Unknown]
  - Terminal state [Unknown]
  - Pyrexia [Unknown]
  - Heart rate increased [Unknown]
  - Herpes zoster [Unknown]
  - Pain of skin [Unknown]
  - Cardiac failure congestive [Unknown]
  - Therapeutic response changed [Unknown]
  - Unresponsive to stimuli [Unknown]
  - Malaise [Unknown]
  - Burning sensation [Unknown]
  - Pruritus [Unknown]
  - Cardiac infection [Unknown]

NARRATIVE: CASE EVENT DATE: 2013
